FAERS Safety Report 21435627 (Version 1)
Quarter: 2022Q4

REPORT INFORMATION
  Report Type: Spontaneous
  Country: US (occurrence: US)
  Receive Date: 20221010
  Receipt Date: 20221010
  Transmission Date: 20230113
  Serious: No
  Sender: FDA-Public Use
  Company Number: US-PFIZER INC-PV202200066746

PATIENT
  Age: 46 Year
  Sex: Female

DRUGS (1)
  1. INLYTA [Suspect]
     Active Substance: AXITINIB
     Indication: Salivary gland cancer
     Dosage: UNK

REACTIONS (3)
  - Off label use [Unknown]
  - Hypersensitivity [Unknown]
  - Asthma [Unknown]
